FAERS Safety Report 8300038-8 (Version None)
Quarter: 2012Q2

REPORT INFORMATION
  Report Type: 
  Country: None (occurrence: None)
  Receive Date: 20120417
  Receipt Date: 20120409
  Transmission Date: 20120825
  Serious: Yes (Hospitalization)
  Sender: FDA-Public Use
  Company Number: 2012-001329

PATIENT
  Age: 82 Year
  Sex: Female

DRUGS (9)
  1. RISEDRONATE SODIUM [Suspect]
     Indication: OSTEOPOROSIS
     Dosage: 17.5MG ONCE WEEKLY, ORAL
     Route: 048
     Dates: start: 20071018, end: 20120310
  2. REBAMIPIDE (REBAMIPIDE) [Concomitant]
  3. FALKEN (FLURBIPROFEN) [Concomitant]
  4. BLOPRESS (CANDESARTAN CILEXETIL) [Concomitant]
  5. MOBIC [Concomitant]
  6. RHEUMATREX [Concomitant]
  7. LOXOPROFEN (LOXOPROFEN) [Concomitant]
  8. PREDONINE /000161201/ (PREDNISOLONE) [Concomitant]
  9. PREDNISOLONE [Concomitant]

REACTIONS (8)
  - DYSPHAGIA [None]
  - RED BLOOD CELL COUNT DECREASED [None]
  - WHITE BLOOD CELL COUNT INCREASED [None]
  - FOREIGN BODY [None]
  - BLOOD UREA INCREASED [None]
  - OESOPHAGITIS [None]
  - OESOPHAGEAL STENOSIS [None]
  - BLOOD IRON DECREASED [None]
